FAERS Safety Report 22061238 (Version 1)
Quarter: 2023Q1

REPORT INFORMATION
  Report Type: Spontaneous
  Country: US (occurrence: US)
  Receive Date: 20230303
  Receipt Date: 20230303
  Transmission Date: 20230418
  Serious: Yes (Other)
  Sender: FDA-Public Use
  Company Number: US-009507513-2303USA000679

PATIENT
  Sex: Male

DRUGS (6)
  1. KEYTRUDA [Suspect]
     Active Substance: PEMBROLIZUMAB
     Indication: Renal cell carcinoma
     Route: 042
  2. LENVATINIB MESYLATE [Suspect]
     Active Substance: LENVATINIB MESYLATE
  3. NIVOLUMAB [Suspect]
     Active Substance: NIVOLUMAB
  4. CABOZANTINIB [Suspect]
     Active Substance: CABOZANTINIB
  5. AXITINIB [Suspect]
     Active Substance: AXITINIB
  6. EVEROLIMUS [Suspect]
     Active Substance: EVEROLIMUS

REACTIONS (2)
  - Malignant neoplasm progression [Not Recovered/Not Resolved]
  - Treatment failure [Not Recovered/Not Resolved]
